FAERS Safety Report 5469148-7 (Version None)
Quarter: 2007Q3

REPORT INFORMATION
  Report Type: 
  Country: None (occurrence: None)
  Receive Date: 20070927
  Receipt Date: 20070920
  Transmission Date: 20080115
  Serious: Yes (Hospitalization, Other)
  Sender: FDA-Public Use
  Company Number: PHRM2007FR02248

PATIENT
  Sex: Female

DRUGS (3)
  1. TEGRETOL [Suspect]
     Indication: AFFECTIVE DISORDER
     Route: 048
  2. FEMARA [Concomitant]
     Indication: BREAST CANCER
     Route: 048
  3. ENANTONE - SLOW RELEASE [Concomitant]
     Indication: BREAST CANCER
     Route: 048

REACTIONS (2)
  - BREAST CANCER [None]
  - BREAST OPERATION [None]
